FAERS Safety Report 4961959-7 (Version None)
Quarter: 2006Q2

REPORT INFORMATION
  Report Type: 
  Country: None (occurrence: None)
  Receive Date: 20060404
  Receipt Date: 20050908
  Transmission Date: 20061013
  Serious: Yes (Hospitalization, Disabling)
  Sender: FDA-Public Use
  Company Number: US-MERCK-0509USA01048

PATIENT
  Age: 47 Year
  Sex: Male
  Weight: 94 kg

DRUGS (1)
  1. VIOXX [Suspect]
     Indication: OSTEOARTHRITIS
     Route: 048
     Dates: start: 19990610, end: 20021001

REACTIONS (15)
  - ANAEMIA [None]
  - ANXIETY [None]
  - CONSTIPATION [None]
  - DIPLOPIA [None]
  - ENTEROBACTER PNEUMONIA [None]
  - FAECAL INCONTINENCE [None]
  - HALLUCINATION [None]
  - INTRACRANIAL ANEURYSM [None]
  - NUTRITIONAL SUPPORT [None]
  - PSEUDOMONAS INFECTION [None]
  - PYREXIA [None]
  - RESPIRATORY FAILURE [None]
  - SINUSITIS [None]
  - STAPHYLOCOCCAL INFECTION [None]
  - STRIDOR [None]
